FAERS Safety Report 6368324-9 (Version None)
Quarter: 2009Q3

REPORT INFORMATION
  Report Type: 
  Country: None (occurrence: None)
  Receive Date: 20090922
  Receipt Date: 20090917
  Transmission Date: 20100115
  Serious: Yes (Other)
  Sender: FDA-Public Use
  Company Number: US-BAYER-200913985BCC

PATIENT
  Age: 62 Year
  Sex: Male

DRUGS (4)
  1. ASPIRIN [Suspect]
     Indication: CARDIAC OPERATION
     Route: 048
  2. INTEGRILIN [Suspect]
     Indication: CARDIAC OPERATION
     Route: 065
  3. LOVENOX [Suspect]
     Indication: CARDIAC OPERATION
     Route: 065
  4. PLAVIX [Suspect]
     Indication: CARDIAC OPERATION
     Route: 048

REACTIONS (2)
  - BLOOD CREATININE INCREASED [None]
  - CEREBRAL HAEMORRHAGE [None]
